FAERS Safety Report 6062854-5 (Version None)
Quarter: 2009Q1

REPORT INFORMATION
  Report Type: 
  Country: None (occurrence: None)
  Receive Date: 20090202
  Receipt Date: 20090202
  Transmission Date: 20090719
  Serious: No
  Sender: FDA-Public Use
  Company Number: None

PATIENT
  Age: 42 Year
  Sex: Male
  Weight: 61.2356 kg

DRUGS (1)
  1. CLINDAMYCIN HCL [Suspect]

REACTIONS (4)
  - DISCOMFORT [None]
  - RASH PRURITIC [None]
  - SKIN BURNING SENSATION [None]
  - SLEEP DISORDER DUE TO GENERAL MEDICAL CONDITION, INSOMNIA TYPE [None]
